FAERS Safety Report 8286828-9 (Version None)
Quarter: 2012Q2

REPORT INFORMATION
  Report Type: 
  Country: None (occurrence: None)
  Receive Date: 20120416
  Receipt Date: 20120413
  Transmission Date: 20120825
  Serious: Yes (Life-Threatening, Hospitalization, Disabling)
  Sender: FDA-Public Use
  Company Number: AU-B.I. PHARMACEUTICALS,INC./RIDGEFIELD-2011-AU-02399AU

PATIENT
  Sex: Male
  Weight: 92 kg

DRUGS (5)
  1. TEGRETOL [Concomitant]
     Dosage: 600 MG
  2. ASPIRIN [Concomitant]
  3. LIPITOR [Concomitant]
  4. PRADAXA [Suspect]
     Indication: ATRIAL FIBRILLATION
     Dosage: 220 MG
     Dates: start: 20110629, end: 20110711
  5. METOPROLOL TARTRATE [Concomitant]

REACTIONS (2)
  - COGNITIVE DISORDER [None]
  - CEREBROVASCULAR ACCIDENT [None]
